FAERS Safety Report 8437441-1 (Version None)
Quarter: 2012Q2

REPORT INFORMATION
  Report Type: 
  Country: None (occurrence: None)
  Receive Date: 20120614
  Receipt Date: 20120608
  Transmission Date: 20120825
  Serious: Yes (Other)
  Sender: FDA-Public Use
  Company Number: FR-GILEAD-2012-0056386

PATIENT
  Age: 41 Year
  Sex: Male

DRUGS (6)
  1. EMTRICITABINE/TENOFOVIR DISOPROXIL FUMARATE [Suspect]
     Indication: HIV INFECTION
     Dosage: 1 DF, QD
     Route: 048
     Dates: start: 20111108
  2. DARUNAVIR HYDRATE [Suspect]
     Indication: HIV INFECTION
     Dosage: 800 MG, UNK
     Route: 048
     Dates: start: 20111108
  3. COMPRALGYL                         /00116401/ [Suspect]
     Indication: TOOTHACHE
     Dosage: 2 DF, UNK
     Dates: start: 20120509, end: 20120514
  4. CLAMOXYL                           /00249601/ [Suspect]
     Indication: TOOTH INFECTION
     Dosage: 500 DF, UNK
     Dates: start: 20120510, end: 20120516
  5. RITONAVIR [Suspect]
     Indication: HIV INFECTION
     Dosage: 100 MG, UNK
     Route: 048
     Dates: start: 20111108
  6. IBUPROFEN (ADVIL) [Suspect]
     Indication: TOOTHACHE
     Dosage: UNK
     Dates: start: 20120501, end: 20120509

REACTIONS (1)
  - AGRANULOCYTOSIS [None]
